FAERS Safety Report 10031556 (Version 2)
Quarter: 2014Q1

REPORT INFORMATION
  Report Type: Spontaneous
  Country: US (occurrence: US)
  Receive Date: 20140324
  Receipt Date: 20140324
  Transmission Date: 20141002
  Serious: Yes (Other)
  Sender: FDA-Public Use
  Company Number: US-GE HEALTHCARE MEDICAL DIAGNOSTICS-OSCN-PR-0806S-0427

PATIENT
  Sex: Male

DRUGS (10)
  1. OMNISCAN [Suspect]
     Indication: PRODUCT USED FOR UNKNOWN INDICATION
     Route: 042
     Dates: start: 2006, end: 2006
  2. OMNISCAN [Suspect]
     Route: 042
     Dates: start: 200707, end: 200707
  3. MAGNEVIST [Suspect]
     Indication: PRODUCT USED FOR UNKNOWN INDICATION
     Route: 042
     Dates: start: 2006, end: 2006
  4. MAGNEVIST [Suspect]
     Route: 042
     Dates: start: 200707, end: 200707
  5. OPTIMARK [Suspect]
     Indication: PRODUCT USED FOR UNKNOWN INDICATION
     Route: 042
     Dates: start: 2006, end: 2006
  6. OPTIMARK [Suspect]
     Dates: start: 200707, end: 200707
  7. MULTIHANCE [Suspect]
     Indication: PRODUCT USED FOR UNKNOWN INDICATION
     Dates: start: 2006, end: 2006
  8. MULTIHANCE [Suspect]
     Dates: start: 200707, end: 200707
  9. PROHANCE [Suspect]
     Indication: PRODUCT USED FOR UNKNOWN INDICATION
     Dates: start: 2006, end: 2006
  10. PROHANCE [Suspect]
     Dates: start: 200707, end: 200707

REACTIONS (1)
  - Nephrogenic systemic fibrosis [Not Recovered/Not Resolved]
